FAERS Safety Report 9778360 (Version 1)
Quarter: 2013Q4

REPORT INFORMATION
  Report Type: Spontaneous
  Country: JP (occurrence: JP)
  Receive Date: 20131223
  Receipt Date: 20131223
  Transmission Date: 20140711
  Serious: Yes (Other)
  Sender: FDA-Public Use
  Company Number: JP-PFIZER INC-2013365286

PATIENT
  Sex: 0

DRUGS (1)
  1. SOLU-MEDROL [Suspect]

REACTIONS (1)
  - Hepatitis B [Unknown]
